FAERS Safety Report 19940215 (Version 2)
Quarter: 2021Q4

REPORT INFORMATION
  Report Type: Spontaneous
  Country: US (occurrence: US)
  Receive Date: 20211011
  Receipt Date: 20211111
  Transmission Date: 20220303
  Serious: No
  Sender: FDA-Public Use
  Company Number: US-AMNEAL PHARMACEUTICALS-2021-AMRX-04028

PATIENT
  Sex: Male
  Weight: 11.882 kg

DRUGS (6)
  1. VIGABATRIN [Suspect]
     Active Substance: VIGABATRIN
     Indication: Infantile spasms
     Dosage: 6 MILLILITER (300MG), BID
     Route: 048
     Dates: start: 20210904, end: 20210906
  2. VIGABATRIN [Suspect]
     Active Substance: VIGABATRIN
     Dosage: 12 MILLILITER (600MG), BID
     Route: 048
     Dates: start: 20210907, end: 20210909
  3. VIGABATRIN [Suspect]
     Active Substance: VIGABATRIN
     Dosage: 18 MILLILITER (900MG), BID
     Route: 048
     Dates: start: 20210910
  4. BACTRIM [Concomitant]
     Active Substance: SULFAMETHOXAZOLE\TRIMETHOPRIM
     Indication: Product used for unknown indication
     Dosage: 3 MILLILITER
     Route: 065
  5. SEPTRA DS [Concomitant]
     Active Substance: SULFAMETHOXAZOLE\TRIMETHOPRIM
     Indication: Kidney infection
     Dosage: UNK
     Route: 065
     Dates: start: 202109
  6. HYDROCORTISONE [Concomitant]
     Active Substance: HYDROCORTISONE
     Indication: Product used for unknown indication
     Dosage: UNK
     Route: 065

REACTIONS (1)
  - No adverse event [Unknown]
